FAERS Safety Report 14990181 (Version 1)
Quarter: 2018Q2

REPORT INFORMATION
  Report Type: Spontaneous
  Country: US (occurrence: US)
  Receive Date: 20180608
  Receipt Date: 20180608
  Transmission Date: 20180711
  Serious: No
  Sender: FDA-Public Use
  Company Number: US-ROCHE-1997971

PATIENT
  Age: 52 Year
  Sex: Female

DRUGS (16)
  1. HYDROCHLOROTHIAZIDE. [Concomitant]
     Active Substance: HYDROCHLOROTHIAZIDE
  2. VALSARTAN. [Concomitant]
     Active Substance: VALSARTAN
  3. OMEPRAZOLE. [Concomitant]
     Active Substance: OMEPRAZOLE
  4. RIFAMPIN. [Concomitant]
     Active Substance: RIFAMPIN
  5. ESTRADIOL. [Concomitant]
     Active Substance: ESTRADIOL
  6. VITAMIN D2 [Concomitant]
     Active Substance: ERGOCALCIFEROL
  7. VITAMIN B12 [Concomitant]
     Active Substance: CYANOCOBALAMIN
  8. ASPIRIN. [Concomitant]
     Active Substance: ASPIRIN
  9. ACTEMRA [Suspect]
     Active Substance: TOCILIZUMAB
     Indication: RHEUMATOID ARTHRITIS
     Route: 058
  10. VITAMIN B6 [Concomitant]
     Active Substance: PYRIDOXINE HYDROCHLORIDE
  11. LEFLUNOMIDE. [Concomitant]
     Active Substance: LEFLUNOMIDE
  12. TURMERIC [Concomitant]
     Active Substance: HERBALS\TURMERIC
  13. FAMOTIDINE. [Concomitant]
     Active Substance: FAMOTIDINE
  14. ATENOLOL. [Concomitant]
     Active Substance: ATENOLOL
  15. FOLIC ACID. [Concomitant]
     Active Substance: FOLIC ACID
  16. BIOTIN [Concomitant]
     Active Substance: BIOTIN

REACTIONS (1)
  - Injection site bruising [Recovering/Resolving]
